FAERS Safety Report 21125359 (Version 1)
Quarter: 2022Q3

REPORT INFORMATION
  Report Type: Spontaneous
  Country: US (occurrence: US)
  Receive Date: 20220725
  Receipt Date: 20220725
  Transmission Date: 20221026
  Serious: No
  Sender: FDA-Public Use
  Company Number: US-JNJFOC-20220721024

PATIENT
  Sex: Female

DRUGS (2)
  1. WOMENS ROGAINE [Suspect]
     Active Substance: MINOXIDIL
     Indication: Alopecia
     Dosage: LESS 1ML
     Route: 061
     Dates: start: 20211207, end: 202207
  2. WOMENS ROGAINE [Suspect]
     Active Substance: MINOXIDIL
     Dosage: LESS 1ML
     Route: 061
     Dates: start: 20220707

REACTIONS (5)
  - Dizziness [Unknown]
  - Hair growth abnormal [Unknown]
  - Weight increased [Unknown]
  - Hypotension [Unknown]
  - Underdose [Unknown]

NARRATIVE: CASE EVENT DATE: 20211201
